FAERS Safety Report 8475467-2 (Version None)
Quarter: 2012Q2

REPORT INFORMATION
  Report Type: 
  Country: None (occurrence: None)
  Receive Date: 20120628
  Receipt Date: 20120619
  Transmission Date: 20120825
  Serious: Yes (Other)
  Sender: FDA-Public Use
  Company Number: BR-PFIZER INC-2012153253

PATIENT
  Age: 47 Year
  Sex: Female

DRUGS (8)
  1. METFORMIN HYDROCHLORIDE [Interacting]
     Indication: DIABETES MELLITUS
     Dosage: 850 MG THREE PILLS A DAY
     Route: 048
     Dates: start: 20070101
  2. GLIMEPIRIDE [Interacting]
     Indication: DIABETES MELLITUS
     Dosage: 1 MG, DAILY
     Route: 048
     Dates: start: 20070101
  3. SOMALGIN [Concomitant]
     Indication: VENOUS OCCLUSION
     Dosage: 100 MG, 1 TABLET A DAY
     Route: 048
     Dates: start: 20100601
  4. GLUCOSAMINE [Concomitant]
     Indication: OSTEOARTHRITIS
     Dosage: 1.5 GRAM ONE SACHET A DAY
     Route: 048
     Dates: start: 20100601
  5. RAMIPRIL [Suspect]
     Indication: VENOUS OCCLUSION
     Dosage: 5 MG, DAILY
     Route: 048
     Dates: start: 20100601
  6. PROBIOTICA [Interacting]
     Indication: DIARRHOEA
     Dosage: 1 DF, DAILY
     Route: 065
     Dates: start: 20120604, end: 20120605
  7. CLOPIDOGREL [Suspect]
     Indication: VENOUS OCCLUSION
     Dosage: 75 MG, DAILY
     Route: 048
     Dates: start: 20100601
  8. ROSUVASTATIN [Suspect]
     Indication: DIABETES MELLITUS
     Dosage: 10 MG, DAILY
     Route: 048
     Dates: start: 20100601

REACTIONS (6)
  - ABDOMINAL PAIN [None]
  - VENOUS OCCLUSION [None]
  - ARTHRITIS [None]
  - DIARRHOEA [None]
  - DRUG INTERACTION [None]
  - MEDICATION RESIDUE [None]
